FAERS Safety Report 7805953-7 (Version None)
Quarter: 2011Q4

REPORT INFORMATION
  Report Type: 
  Country: None (occurrence: None)
  Receive Date: 20111007
  Receipt Date: 20111007
  Transmission Date: 20120403
  Serious: Yes (Other)
  Sender: FDA-Public Use
  Company Number: None

PATIENT
  Sex: Male
  Weight: 52.7 kg

DRUGS (2)
  1. COMPAZINE [Suspect]
     Indication: VOMITING
     Dosage: COMPAZINE 10 MG I.V., Q
     Route: 042
     Dates: start: 20111001, end: 20110101
  2. COMPAZINE [Suspect]
     Indication: NAUSEA
     Dosage: COMPAZINE 10 MG I.V., Q
     Route: 042
     Dates: start: 20111001, end: 20110101

REACTIONS (4)
  - MUSCLE SPASMS [None]
  - HEART RATE INCREASED [None]
  - PROTRUSION TONGUE [None]
  - BODY TEMPERATURE INCREASED [None]
